FAERS Safety Report 7051099-8 (Version None)
Quarter: 2010Q4

REPORT INFORMATION
  Report Type: 
  Country: None (occurrence: None)
  Receive Date: 20101019
  Receipt Date: 20101007
  Transmission Date: 20110411
  Serious: No
  Sender: FDA-Public Use
  Company Number: US-JNJFOC-20100804118

PATIENT
  Sex: Male
  Weight: 108.86 kg

DRUGS (19)
  1. FENTANYL [Suspect]
     Indication: PAIN IN EXTREMITY
     Route: 062
  2. FENTANYL [Suspect]
     Route: 062
  3. FENTANYL [Suspect]
     Route: 062
  4. FENTANYL [Suspect]
     Indication: BACK PAIN
     Route: 062
  5. FENTANYL [Suspect]
     Route: 062
  6. FENTANYL [Suspect]
     Route: 062
  7. FENTANYL [Suspect]
     Dosage: 50UG/HR 25UG/HR; NDC# FOR 25UG/HR: 0781-7241-55
     Route: 062
  8. FENTANYL [Suspect]
     Dosage: NDC# 0781-7242-55
     Route: 062
  9. FENTANYL [Suspect]
     Dosage: 50UG/HR 25UG/HR; NDC# FOR 25UG/HR: 0781-7241-55
     Route: 062
  10. FENTANYL [Suspect]
     Dosage: NDC# 0781-7242-55
     Route: 062
  11. DURAGESIC-100 [Suspect]
     Indication: PAIN IN EXTREMITY
     Route: 062
  12. DURAGESIC-100 [Suspect]
     Indication: BACK PAIN
     Route: 062
  13. GLUCOTROL [Concomitant]
     Indication: BLOOD GLUCOSE ABNORMAL
     Route: 048
  14. NEURONTIN [Concomitant]
     Indication: PAIN
     Route: 048
  15. DILAUDID [Concomitant]
     Indication: PAIN
     Route: 048
  16. PRILOSEC [Concomitant]
     Indication: ABDOMINAL DISCOMFORT
     Route: 048
  17. UNKNOWN MEDICATION [Concomitant]
     Indication: PAIN
  18. UNKNOWN MEDICATION [Concomitant]
     Indication: BLOOD CHOLESTEROL
  19. UNKNOWN MEDICATION [Concomitant]
     Indication: DIABETES MELLITUS

REACTIONS (10)
  - BLOOD TRIGLYCERIDES INCREASED [None]
  - DRUG EFFECT DECREASED [None]
  - HYPERSOMNIA [None]
  - HYPERTENSION [None]
  - INAPPROPRIATE SCHEDULE OF DRUG ADMINISTRATION [None]
  - INCORRECT DOSE ADMINISTERED [None]
  - PAIN [None]
  - PRODUCT ADHESION ISSUE [None]
  - WEIGHT INCREASED [None]
  - WRONG TECHNIQUE IN DRUG USAGE PROCESS [None]
